FAERS Safety Report 7249617-X (Version None)
Quarter: 2011Q1

REPORT INFORMATION
  Report Type: 
  Country: None (occurrence: None)
  Receive Date: 20110128
  Receipt Date: 20101129
  Transmission Date: 20110831
  Serious: No
  Sender: FDA-Public Use
  Company Number: US-BAYER-2010-005510

PATIENT
  Sex: Male

DRUGS (2)
  1. YASMIN [Suspect]
     Dosage: UNK
  2. OCELLA [Suspect]
     Dosage: UNK

REACTIONS (1)
  - EMOTIONAL DISTRESS [None]
